FAERS Safety Report 6272926-8 (Version None)
Quarter: 2009Q3

REPORT INFORMATION
  Report Type: 
  Country: None (occurrence: None)
  Receive Date: 20090717
  Receipt Date: 20090707
  Transmission Date: 20100115
  Serious: Yes (Other)
  Sender: FDA-Public Use
  Company Number: US-PFIZER INC-2009238080

PATIENT
  Age: 75 Year

DRUGS (3)
  1. LYRICA [Suspect]
     Indication: RESTLESS LEGS SYNDROME
     Dosage: FREQUENCY: 3X/DAY, EVERY DAY;
     Dates: start: 20090601
  2. LYRICA [Interacting]
     Indication: NEUROPATHY PERIPHERAL
  3. MIRAPEX [Interacting]
     Indication: RESTLESS LEGS SYNDROME
     Dosage: UNK

REACTIONS (2)
  - DRUG INTERACTION [None]
  - SOMNAMBULISM [None]
